FAERS Safety Report 9044656 (Version 2)
Quarter: 2013Q2

REPORT INFORMATION
  Report Type: Report from Study
  Country: JP (occurrence: JP)
  Receive Date: 20130130
  Receipt Date: 20130625
  Transmission Date: 20140414
  Serious: No
  Sender: FDA-Public Use
  Company Number: JP-VERTEX PHARMACEUTICALS INC.-2013-001332

PATIENT
  Age: 58 Year
  Sex: Female

DRUGS (15)
  1. VX-950 (TELAPREVIR) [Suspect]
     Indication: CHRONIC HEPATITIS C
     Dosage: 2250 MG, QD
     Route: 048
     Dates: start: 20120330, end: 20120622
  2. PEGINTRON [Suspect]
     Indication: CHRONIC HEPATITIS C
     Dosage: 1.5 ?G/KG
     Route: 058
     Dates: start: 20120330, end: 20120727
  3. PEGINTRON [Suspect]
     Dosage: 1.5 ?G/KG, QW
     Route: 058
     Dates: start: 20120810, end: 20120810
  4. PEGINTRON [Suspect]
     Dosage: 0.75 ?G/KG, QW
     Route: 058
     Dates: start: 20120817, end: 20120817
  5. PEGINTRON [Suspect]
     Dosage: 1.5 ?G/KG, QW
     Route: 058
     Dates: start: 20120824, end: 20120914
  6. REBETOL [Suspect]
     Indication: CHRONIC HEPATITIS C
     Dosage: 600 MG, QD
     Route: 048
     Dates: start: 20120330, end: 20120524
  7. REBETOL [Suspect]
     Dosage: 400 MG, QD
     Route: 048
     Dates: start: 20120525, end: 20120530
  8. REBETOL [Suspect]
     Dosage: 200 MG, QD
     Route: 048
     Dates: start: 20120601, end: 20120906
  9. REBETOL [Suspect]
     Dosage: 400 MG, QD
     Route: 048
     Dates: start: 20120907, end: 20120914
  10. MUCOSTA [Concomitant]
     Dosage: 300 MG, QD
     Route: 048
     Dates: end: 20120419
  11. SELBEX [Concomitant]
     Dosage: 150 MG, QD
     Route: 048
     Dates: end: 20120419
  12. VONFENAC [Concomitant]
     Dosage: 25 MG, PRN
     Route: 054
     Dates: start: 20120330
  13. ALOSITOL [Concomitant]
     Dosage: 100 MG, QD
     Route: 048
     Dates: start: 20120427
  14. LECICARBON [Concomitant]
     Dosage: 1 DF, QD
     Route: 054
     Dates: start: 20120623
  15. ALLELOCK [Concomitant]
     Dosage: 10 MG, QD
     Route: 048

REACTIONS (1)
  - White blood cell count decreased [Recovered/Resolved]
